FAERS Safety Report 7929947-6 (Version None)
Quarter: 2011Q4

REPORT INFORMATION
  Report Type: 
  Country: None (occurrence: None)
  Receive Date: 20111108
  Receipt Date: 20110110
  Transmission Date: 20120403
  Serious: Yes (Death)
  Sender: FDA-Public Use
  Company Number: PHHY2011US02569

PATIENT
  Age: 50 Year
  Sex: Female

DRUGS (2)
  1. CHEMOTHERAPEUTICS NOS (NO INGREDIENTS/ SUBSTANCES) [Concomitant]
  2. ZOMETA [Suspect]
     Dates: start: 20100209

REACTIONS (1)
  - NEOPLASM MALIGNANT [None]
